FAERS Safety Report 13073456 (Version 1)
Quarter: 2016Q4

REPORT INFORMATION
  Report Type: Report from Study
  Country: None (occurrence: CA)
  Receive Date: 20161229
  Receipt Date: 20161229
  Transmission Date: 20170207
  Serious: Yes (Hospitalization, Other)
  Sender: FDA-Public Use
  Company Number: CA-ABBVIE-16K-028-1795144-00

PATIENT
  Sex: Male

DRUGS (1)
  1. HUMIRA [Suspect]
     Active Substance: ADALIMUMAB
     Indication: CROHN^S DISEASE
     Route: 058
     Dates: start: 20160914, end: 2016

REACTIONS (4)
  - Intestinal mass [Unknown]
  - Crohn^s disease [Recovering/Resolving]
  - Infection [Recovering/Resolving]
  - Ileal stenosis [Unknown]

NARRATIVE: CASE EVENT DATE: 2016
